FAERS Safety Report 13714499 (Version 4)
Quarter: 2018Q4

REPORT INFORMATION
  Report Type: Report from Study
  Country: CA (occurrence: CA)
  Receive Date: 20170704
  Receipt Date: 20181203
  Transmission Date: 20190204
  Serious: Yes (Other)
  Sender: FDA-Public Use
  Company Number: PHHY2017CA097209

PATIENT
  Sex: Male

DRUGS (1)
  1. GILENYA [Suspect]
     Active Substance: FINGOLIMOD HYDROCHLORIDE
     Indication: PRODUCT USED FOR UNKNOWN INDICATION
     Dosage: UNK
     Route: 048
     Dates: start: 20161117

REACTIONS (6)
  - Balance disorder [Not Recovered/Not Resolved]
  - Blindness [Unknown]
  - Visual impairment [Unknown]
  - Eye disorder [Unknown]
  - Diplopia [Not Recovered/Not Resolved]
  - General physical health deterioration [Unknown]
